FAERS Safety Report 4980498-0 (Version None)
Quarter: 2006Q2

REPORT INFORMATION
  Report Type: 
  Country: None (occurrence: None)
  Receive Date: 20060424
  Receipt Date: 20060405
  Transmission Date: 20061013
  Serious: Yes (Death)
  Sender: FDA-Public Use
  Company Number: JP-AVENTIS-200611093JP

PATIENT
  Age: 73 Year
  Sex: Male
  Weight: 57 kg

DRUGS (12)
  1. TAXOTERE [Suspect]
     Route: 041
     Dates: start: 20060320, end: 20060320
  2. TAXOTERE [Suspect]
     Route: 041
     Dates: start: 20060320, end: 20060320
  3. ESTRACYT [Concomitant]
     Dosage: DOSE: 4 CAPSULES
  4. OXYCONTIN [Concomitant]
     Route: 048
  5. MORPHINE [Concomitant]
  6. ZOMETA [Concomitant]
     Route: 041
  7. DUROTEP [Concomitant]
  8. FENTANEST [Concomitant]
  9. ZANTAC [Concomitant]
  10. DECADRON [Concomitant]
  11. ZOFRAN [Concomitant]
  12. POLARAMINE [Concomitant]

REACTIONS (9)
  - CONDITION AGGRAVATED [None]
  - DEPRESSED LEVEL OF CONSCIOUSNESS [None]
  - DISSEMINATED INTRAVASCULAR COAGULATION [None]
  - HEPATIC FUNCTION ABNORMAL [None]
  - JAUNDICE [None]
  - LIVER DISORDER [None]
  - PLEURAL EFFUSION [None]
  - PULMONARY OEDEMA [None]
  - RESPIRATORY DISORDER [None]
